FAERS Safety Report 11943066 (Version 1)
Quarter: 2016Q1

REPORT INFORMATION
  Report Type: Spontaneous
  Country: US (occurrence: US)
  Receive Date: 20160125
  Receipt Date: 20160125
  Transmission Date: 20160526
  Serious: No
  Sender: FDA-Public Use
  Company Number: US-UNITED THERAPEUTICS-UNT-2015-010444

PATIENT
  Age: 52 Year
  Sex: Female
  Weight: 83.9 kg

DRUGS (5)
  1. ADCIRCA [Concomitant]
     Active Substance: TADALAFIL
     Indication: PRODUCT USED FOR UNKNOWN INDICATION
  2. LETAIRIS [Suspect]
     Active Substance: AMBRISENTAN
     Dosage: UNK
  3. REMODULIN [Suspect]
     Active Substance: TREPROSTINIL
     Indication: PULMONARY ARTERIAL HYPERTENSION
     Dosage: 0.002 ?G/KG/MIN,CONTINUING
     Route: 058
     Dates: start: 20150702
  4. REMODULIN [Suspect]
     Active Substance: TREPROSTINIL
     Dosage: 0.014 ?G/KG/MIN, CONTINUING
     Route: 058
  5. LETAIRIS [Suspect]
     Active Substance: AMBRISENTAN
     Indication: PRODUCT USED FOR UNKNOWN INDICATION
     Dosage: 10 MG, QD
     Route: 048
     Dates: start: 20130521

REACTIONS (11)
  - Skin striae [Unknown]
  - Fatigue [Unknown]
  - Infusion site inflammation [Unknown]
  - Infusion site warmth [Unknown]
  - Device dislocation [Unknown]
  - Dyspnoea [Unknown]
  - Drug dose omission [Unknown]
  - Infusion site pustule [Unknown]
  - Infusion site pain [Unknown]
  - Infusion site erythema [Unknown]
  - Oedema [Unknown]

NARRATIVE: CASE EVENT DATE: 201508
